FAERS Safety Report 20781360 (Version 1)
Quarter: 2022Q2

REPORT INFORMATION
  Report Type: Spontaneous
  Country: DE (occurrence: None)
  Receive Date: 20220504
  Receipt Date: 20220504
  Transmission Date: 20220721
  Serious: Yes (Other)
  Sender: FDA-Public Use
  Company Number: DE-ROCHE-3061477

PATIENT
  Age: 14 Year
  Sex: Male

DRUGS (2)
  1. EVRYSDI [Suspect]
     Active Substance: RISDIPLAM
     Indication: Spinal muscular atrophy
     Route: 048
  2. MOVICOL JUNIOR [Concomitant]
     Indication: Constipation
     Route: 048
     Dates: start: 2010

REACTIONS (2)
  - Headache [Recovering/Resolving]
  - Disturbance in attention [Recovering/Resolving]

NARRATIVE: CASE EVENT DATE: 20210101
